FAERS Safety Report 5084429-7 (Version None)
Quarter: 2006Q3

REPORT INFORMATION
  Report Type: 
  Country: None (occurrence: None)
  Receive Date: 20060821
  Receipt Date: 20060711
  Transmission Date: 20061208
  Serious: Yes (Other)
  Sender: FDA-Public Use
  Company Number: AU-GLAXOSMITHKLINE-B0431239A

PATIENT
  Age: 54 Year
  Sex: Female
  Weight: 101 kg

DRUGS (5)
  1. ZOFRAN [Suspect]
     Dosage: 8MG WEEKLY
     Route: 042
     Dates: start: 20060707, end: 20060707
  2. DEXAMETHASONE [Concomitant]
     Dosage: 8MG WEEKLY
     Route: 042
     Dates: start: 20060707
  3. FOTEMUSTINE [Concomitant]
     Route: 042
     Dates: start: 20060707
  4. WARFARIN [Concomitant]
  5. CLEXANE [Concomitant]

REACTIONS (5)
  - CHEST DISCOMFORT [None]
  - CHEST PAIN [None]
  - PAIN IN JAW [None]
  - PULMONARY EMBOLISM [None]
  - SENSATION OF HEAVINESS [None]
